FAERS Safety Report 5325179-9 (Version None)
Quarter: 2007Q2

REPORT INFORMATION
  Report Type: 
  Country: None (occurrence: None)
  Receive Date: 20070515
  Receipt Date: 20070514
  Transmission Date: 20071010
  Serious: Yes (Hospitalization)
  Sender: FDA-Public Use
  Company Number: A0651265A

PATIENT
  Age: 3 Year
  Sex: Female
  Weight: 15 kg

DRUGS (1)
  1. AMOXICILLIN + CLAVULANATE K [Suspect]
     Indication: SINUSITIS
     Route: 048
     Dates: start: 20060907, end: 20060921

REACTIONS (5)
  - AGRANULOCYTOSIS [None]
  - HAEMOLYTIC ANAEMIA [None]
  - LEUKOPENIA [None]
  - NEUTROPENIA [None]
  - THROMBOCYTOPENIA [None]
